FAERS Safety Report 4693626-1 (Version None)
Quarter: 2005Q2

REPORT INFORMATION
  Report Type: 
  Country: None (occurrence: None)
  Receive Date: 20050616
  Receipt Date: 20050614
  Transmission Date: 20051028
  Serious: Yes (Hospitalization)
  Sender: FDA-Public Use
  Company Number: TCI2005A02727

PATIENT
  Age: 76 Year
  Sex: Male

DRUGS (5)
  1. LEUPROLIDE ACETATE [Suspect]
     Indication: PROSTATE CANCER
     Dosage: 3.75 MG (3.75 MG, 1 IN 28 D) SUBCUTANEOUS
     Route: 058
     Dates: start: 20050215, end: 20050411
  2. HALCION (TRIAZOLAM) (TABLETS) [Concomitant]
  3. WARFARIN (WARFARIN POTASSIUM) (TABLETS) [Concomitant]
  4. MAGMITT (MAGNESIUM OXIDE) (TABLETS) [Concomitant]
  5. POSTERISAN (POSTERISAN) (OINTMENT) [Concomitant]

REACTIONS (7)
  - ABASIA [None]
  - CENTRAL VENOUS PRESSURE DECREASED [None]
  - DEHYDRATION [None]
  - FEEDING DISORDER [None]
  - GENERAL PHYSICAL HEALTH DETERIORATION [None]
  - HYPOPITUITARISM [None]
  - URINE OUTPUT INCREASED [None]
